FAERS Safety Report 8908986 (Version 1)
Quarter: 2012Q4

REPORT INFORMATION
  Report Type: 
  Country: JP (occurrence: JP)
  Receive Date: 20121114
  Receipt Date: 20121114
  Transmission Date: 20130627
  Serious: Yes (Other)
  Sender: FDA-Public Use
  Company Number: JP-BAYER-2012-119115

PATIENT
  Age: 86 Year
  Sex: Male

DRUGS (1)
  1. BAYASPIRIN [Suspect]
     Dosage: Daily dose 100 mg
     Route: 048

REACTIONS (2)
  - Alkalosis [None]
  - Respiratory failure [None]
